FAERS Safety Report 6108219-9 (Version None)
Quarter: 2009Q1

REPORT INFORMATION
  Report Type: 
  Country: None (occurrence: None)
  Receive Date: 20090304
  Receipt Date: 20080514
  Transmission Date: 20090719
  Serious: Yes (Other)
  Sender: FDA-Public Use
  Company Number: US-000887

PATIENT
  Age: 48 Year
  Sex: Female
  Weight: 79 kg

DRUGS (9)
  1. ISOVUE-300 [Suspect]
     Indication: ABDOMINAL PAIN
     Dosage: 125ML QD INTRAVENOUS (NOT OTHERWISE SPECIFIED)
     Route: 042
     Dates: start: 20080513, end: 20080513
  2. ISOVUE-300 [Suspect]
     Indication: COMPUTERISED TOMOGRAM ABDOMEN
     Dosage: 125ML QD INTRAVENOUS (NOT OTHERWISE SPECIFIED)
     Route: 042
     Dates: start: 20080513, end: 20080513
  3. ISOVUE-300 [Suspect]
     Indication: VOMITING
     Dosage: 125ML QD INTRAVENOUS (NOT OTHERWISE SPECIFIED)
     Route: 042
     Dates: start: 20080513, end: 20080513
  4. NEXIUM [Concomitant]
  5. SYNTHROID [Concomitant]
  6. XANAX (ALPRAZOLAM)1 [Concomitant]
  7. SINGULAIR [Concomitant]
  8. ZOLOFT [Concomitant]
  9. LIPITOR [Concomitant]

REACTIONS (1)
  - HYPERSENSITIVITY [None]
